FAERS Safety Report 5056262-3 (Version None)
Quarter: 2006Q2

REPORT INFORMATION
  Report Type: 
  Country: None (occurrence: None)
  Receive Date: 20060616
  Receipt Date: 20060412
  Transmission Date: 20061013
  Serious: Yes (Hospitalization, Other)
  Sender: FDA-Public Use
  Company Number: 200517957US

PATIENT
  Age: 70 Year
  Sex: Male
  Weight: 82.6 kg

DRUGS (27)
  1. LANTUS [Suspect]
     Indication: DIABETES MELLITUS NON-INSULIN-DEPENDENT
     Dosage: 25 U/DAY SC
     Route: 058
     Dates: start: 20050801
  2. LANTUS [Suspect]
     Indication: DIABETES MELLITUS NON-INSULIN-DEPENDENT
     Dosage: 26 U QD
  3. LANTUS [Suspect]
     Indication: DIABETES MELLITUS NON-INSULIN-DEPENDENT
     Dosage: 38 U QD
  4. OPTICLIK [Suspect]
     Indication: DIABETES MELLITUS NON-INSULIN-DEPENDENT
     Dates: start: 20050801
  5. GLYBURIDE [Concomitant]
  6. AVANDIA [Concomitant]
  7. MONTELUKAST SODIUM [Concomitant]
  8. FLUTICASONE PROPIONATE (FLONASE) [Concomitant]
  9. FLUTICASONE PROPIONATE (FLOVENT) [Concomitant]
  10. SALMETEROL XINAFOATE (SEREVENT DISKUS) [Concomitant]
  11. LISINOPRIL [Concomitant]
  12. LIPITOR [Concomitant]
  13. PLAVIX [Concomitant]
  14. DIGOXIN [Concomitant]
  15. NICOTINIC ACID (NIASPAN) [Concomitant]
  16. BENTYL [Concomitant]
  17. ACETYSALICYLIC ACID (ASPIRIN) [Concomitant]
  18. ALBUTEROL [Concomitant]
  19. IPRATROPIUM BROMIDE (ATROVENT) [Concomitant]
  20. HUMALOG [Concomitant]
  21. METAXALONE (SKELAXIN) [Concomitant]
  22. NAPROXEN [Concomitant]
  23. MULTI-VITAMIN [Concomitant]
  24. GLUCOSAMINE [Concomitant]
  25. VITAMIN E [Concomitant]
  26. AMBIEN [Concomitant]
  27. IRON [Concomitant]

REACTIONS (2)
  - HYPERGLYCAEMIA [None]
  - HYPOGLYCAEMIC SEIZURE [None]
